FAERS Safety Report 16841536 (Version 2)
Quarter: 2019Q3

REPORT INFORMATION
  Report Type: Report from Study
  Country: US (occurrence: BR)
  Receive Date: 20190923
  Receipt Date: 20190924
  Transmission Date: 20191005
  Serious: Yes (Hospitalization, Other)
  Sender: FDA-Public Use
  Company Number: US-SUNOVION-2019SUN003846

PATIENT
  Age: 72 Year
  Sex: Male

DRUGS (4)
  1. XOLAIR [Suspect]
     Active Substance: OMALIZUMAB
     Dosage: UNK
     Route: 065
     Dates: start: 20190424
  2. XOLAIR [Suspect]
     Active Substance: OMALIZUMAB
     Indication: URTICARIA
     Dosage: UNK
     Route: 065
     Dates: start: 20190328
  3. MIFLONIDE [Suspect]
     Active Substance: BUDESONIDE
     Indication: PRODUCT USED FOR UNKNOWN INDICATION
     Dosage: UNK
     Route: 065
  4. INDACATEROL [Suspect]
     Active Substance: INDACATEROL
     Indication: LUNG DISORDER
     Dosage: 300 MG, UNK
     Route: 065

REACTIONS (21)
  - Chronic obstructive pulmonary disease [Not Recovered/Not Resolved]
  - Pneumonia [Not Recovered/Not Resolved]
  - Malaise [Not Recovered/Not Resolved]
  - Thrombosis [Unknown]
  - Urticaria [Recovered/Resolved]
  - Gastric disorder [Not Recovered/Not Resolved]
  - Peripheral swelling [Unknown]
  - Dyspnoea [Not Recovered/Not Resolved]
  - Temperature intolerance [Unknown]
  - Headache [Unknown]
  - Pain [Unknown]
  - Secretion discharge [Not Recovered/Not Resolved]
  - Product use in unapproved indication [Unknown]
  - Decreased appetite [Unknown]
  - Fatigue [Unknown]
  - Somnolence [Unknown]
  - Retching [Unknown]
  - Gait inability [Unknown]
  - Flatulence [Not Recovered/Not Resolved]
  - Insomnia [Unknown]
  - Sensitivity to weather change [Unknown]

NARRATIVE: CASE EVENT DATE: 20190510
